FAERS Safety Report 9011811 (Version 2)
Quarter: 2013Q1

REPORT INFORMATION
  Report Type: Spontaneous
  Country: US (occurrence: None)
  Receive Date: 20121228
  Receipt Date: 20130117
  Transmission Date: 20140127
  Serious: Yes (Other)
  Sender: FDA-Public Use
  Company Number: JPI-P-026976

PATIENT
  Age: 33 Year
  Sex: Female

DRUGS (12)
  1. XYREM [Suspect]
     Indication: CATAPLEXY
     Dosage: 4.5 GM (2.25 GM, 2 IN 1 D)
     Route: 048
     Dates: start: 20090625, end: 2009
  2. ALBUTEROL [Concomitant]
  3. CITALOPRAM HYDROBROMIDE [Concomitant]
  4. GLARIRAMER ACETATE [Concomitant]
  5. CYCLOBENZAPRINE HYDROCHLORIDE [Concomitant]
  6. ARMODAFINIL [Concomitant]
  7. MULTIVITAMINS [Concomitant]
  8. OPTIVE [Concomitant]
  9. PROMETHAZINE HYDROCHLORIDE [Concomitant]
  10. ALBUTEROL SULFATE [Concomitant]
  11. BECLOMETHASONE DIPROPIONATE [Concomitant]
  12. ALPRAZOLAM [Suspect]

REACTIONS (16)
  - Sinus headache [None]
  - Rhinorrhoea [None]
  - Rhinitis allergic [None]
  - Myalgia [None]
  - Back pain [None]
  - Memory impairment [None]
  - Disturbance in attention [None]
  - Dysphemia [None]
  - Bronchitis [None]
  - Asthma [None]
  - Drug dependence [None]
  - Cataplexy [None]
  - Neck pain [None]
  - Arthralgia [None]
  - Hypersomnia [None]
  - Sleep apnoea syndrome [None]
